FAERS Safety Report 7733839-5 (Version None)
Quarter: 2011Q3

REPORT INFORMATION
  Report Type: 
  Country: None (occurrence: None)
  Receive Date: 20110906
  Receipt Date: 20110906
  Transmission Date: 20111222
  Serious: Yes (Disabling, Other)
  Sender: FDA-Public Use
  Company Number: None

PATIENT
  Age: 53 Year
  Sex: Female
  Weight: 131.4 kg

DRUGS (2)
  1. TRIAMCINOLONE [Suspect]
     Indication: VITILIGO
     Dosage: APPLY TO AFFECTED AREA TWICE A DAY 2 WEEKS ON 2 WEEKS OFF
     Dates: start: 20090403, end: 20090602
  2. TRIAMCINOLONE [Suspect]
     Indication: VITILIGO
     Dosage: APPLY TO AFFECTED AREA TWICE A DAY 2 WEEKS ON 2 WEEKS OFF
     Dates: start: 20090603, end: 20091003

REACTIONS (2)
  - PRODUCT SUBSTITUTION ISSUE [None]
  - SKIN DISCOLOURATION [None]
